FAERS Safety Report 5096677-0 (Version None)
Quarter: 2006Q3

REPORT INFORMATION
  Report Type: 
  Country: None (occurrence: None)
  Receive Date: 20060831
  Receipt Date: 20060824
  Transmission Date: 20061208
  Serious: Yes (Hospitalization)
  Sender: FDA-Public Use
  Company Number: GXKR2006DE05146

PATIENT
  Sex: Male

DRUGS (1)
  1. METFORMIN HEXAL (NGX) (METFORMIN) FILM-COATED TABLET, 1000MG [Suspect]
     Dosage: ORAL
     Route: 048

REACTIONS (3)
  - HEADACHE [None]
  - PYREXIA [None]
  - VOMITING [None]
